FAERS Safety Report 7511156-6 (Version None)
Quarter: 2011Q2

REPORT INFORMATION
  Report Type: 
  Country: None (occurrence: None)
  Receive Date: 20110519
  Receipt Date: 20110508
  Transmission Date: 20111010
  Serious: Yes (Life-Threatening, Other)
  Sender: FDA-Public Use
  Company Number: 1000020940

PATIENT
  Age: 19 Year
  Sex: Male
  Weight: 75 kg

DRUGS (4)
  1. ESCITALOPRAM [Suspect]
     Dosage: 30 MCG, ONCE, ORAL
     Route: 048
     Dates: start: 20110508, end: 20110508
  2. FENISTIL (DIMETHINDENE MALEATE) [Suspect]
     Dosage: 1 BOTTLE, ORAL
     Route: 048
     Dates: start: 20110508, end: 20110508
  3. ALCOHOL (ETHANOL) [Suspect]
     Dosage: ORAL
     Route: 048
     Dates: start: 20110508, end: 20110508
  4. ERGENYL (VALPROATE SODIUM) [Suspect]
     Dosage: 3200 MG, ONCE, ORAL
     Route: 048
     Dates: start: 20110508, end: 20110508

REACTIONS (5)
  - LOSS OF CONSCIOUSNESS [None]
  - SUICIDE ATTEMPT [None]
  - SOMNOLENCE [None]
  - MULTIPLE DRUG OVERDOSE INTENTIONAL [None]
  - VOMITING [None]
